FAERS Safety Report 18799453 (Version 1)
Quarter: 2021Q1

REPORT INFORMATION
  Report Type: Spontaneous
  Country: US (occurrence: US)
  Receive Date: 20210128
  Receipt Date: 20210128
  Transmission Date: 20210419
  Serious: Yes (Other)
  Sender: FDA-Public Use
  Company Number: US-PFIZER INC-2015029427

PATIENT
  Age: 61 Year
  Sex: Male

DRUGS (1)
  1. CORTEF [Suspect]
     Active Substance: HYDROCORTISONE
     Dosage: UNK

REACTIONS (1)
  - Drug dependence [Unknown]
